FAERS Safety Report 8342310-1 (Version None)
Quarter: 2012Q2

REPORT INFORMATION
  Report Type: 
  Country: None (occurrence: None)
  Receive Date: 20120507
  Receipt Date: 20120503
  Transmission Date: 20120825
  Serious: Yes (Other)
  Sender: FDA-Public Use
  Company Number: US-AMGEN-USASP2011017880

PATIENT
  Age: 61 Year
  Sex: Female
  Weight: 65 kg

DRUGS (6)
  1. AVAPRO [Concomitant]
     Indication: HYPERTENSION
     Dosage: UNK
     Route: 048
  2. ENBREL [Suspect]
     Indication: PSORIATIC ARTHROPATHY
     Dosage: 50 MG, QWK
     Route: 058
     Dates: start: 20100726
  3. ENBREL [Suspect]
     Dosage: 50 MG, QWK
     Dates: start: 20100719
  4. TOVIAZ [Concomitant]
     Indication: HYPERTENSION
     Dosage: UNK
  5. RESTASIS [Concomitant]
     Indication: DRY EYE
     Dosage: UNK UNK, BID
     Route: 047
  6. BUSPAR [Concomitant]
     Indication: DEPRESSION
     Dosage: UNK
     Route: 048

REACTIONS (4)
  - WEIGHT INCREASED [None]
  - MOOD SWINGS [None]
  - INCREASED APPETITE [None]
  - PRODUCTIVE COUGH [None]
